FAERS Safety Report 9400282 (Version 1)
Quarter: 2013Q1

REPORT INFORMATION
  Report Type: Spontaneous
  Country: US (occurrence: US)
  Receive Date: 20130130
  Receipt Date: 20130130
  Transmission Date: 20140127
  Serious: Yes (Other)
  Sender: FDA-Public Use
  Company Number: 2013-00839

PATIENT
  Age: 71 Year
  Sex: Female

DRUGS (3)
  1. PACLITAXEL [Suspect]
     Indication: OVARIAN EPITHELIAL CANCER STAGE III
  2. CARBOPLATIN [Suspect]
     Indication: OVARIAN EPITHELIAL CANCER STAGE III
  3. DEXAMETHASONE [Suspect]
     Dosage: 20 MG NIGHT BEFORE CHEMO; 20 MG DAY OF CHEMO, 8 MG DAILY FOR THE NEXT THREE DAYS AFTER CHEMO.

REACTIONS (8)
  - Large intestine perforation [None]
  - Abdominal pain [None]
  - Hypotension [None]
  - Tachycardia [None]
  - Diarrhoea [None]
  - Nausea [None]
  - Asthenia [None]
  - Neutropenia [None]
